FAERS Safety Report 15504857 (Version 1)
Quarter: 2018Q4

REPORT INFORMATION
  Report Type: Spontaneous
  Country: CA (occurrence: CA)
  Receive Date: 20181009
  Receipt Date: 20181009
  Transmission Date: 20190205
  Serious: Yes (Life-Threatening, Hospitalization, Disabling)
  Sender: FDA-Public Use
  Company Number: None

PATIENT
  Age: 70 Year
  Sex: Female
  Weight: 78.75 kg

DRUGS (1)
  1. ALLOPURINOL. [Suspect]
     Active Substance: ALLOPURINOL
     Indication: GOUT
     Route: 048
     Dates: start: 20180423, end: 20180430

REACTIONS (9)
  - Fatigue [None]
  - Stress [None]
  - Onychomadesis [None]
  - Asthma [None]
  - Stevens-Johnson syndrome [None]
  - Staphylococcal infection [None]
  - Eye disorder [None]
  - Fear [None]
  - Alopecia [None]

NARRATIVE: CASE EVENT DATE: 20180508
